FAERS Safety Report 20079214 (Version 2)
Quarter: 2022Q4

REPORT INFORMATION
  Report Type: Report from Study
  Country: KW (occurrence: KW)
  Receive Date: 20211117
  Receipt Date: 20221028
  Transmission Date: 20230112
  Serious: Yes (Hospitalization)
  Sender: FDA-Public Use
  Company Number: KW-ABBVIE-21K-091-4160742-00

PATIENT
  Age: 40 Year
  Sex: Female
  Weight: 66 kg

DRUGS (9)
  1. HUMIRA [Suspect]
     Active Substance: ADALIMUMAB
     Indication: Colitis ulcerative
     Route: 058
     Dates: start: 20211028, end: 20220324
  2. HUMIRA [Suspect]
     Active Substance: ADALIMUMAB
     Dosage: LOADING DOSE
     Route: 058
     Dates: start: 20220914, end: 20220914
  3. Cortiment [Concomitant]
     Indication: Product used for unknown indication
     Dosage: FORM STRENGTH: 9MG
  4. PENTASA [Concomitant]
     Active Substance: MESALAMINE
     Indication: Colitis ulcerative
     Dosage: FORM STRENGTH: 2 GRAM
     Route: 048
  5. CORTISONE [Concomitant]
     Active Substance: CORTISONE
     Indication: Product used for unknown indication
     Dosage: 40MG X 1 WEEK, TAPERED DOSE WEEKLY TO REDUCE 5MG, TO COMPLETE AFTER 8 WEEKS
  6. CORTISONE [Concomitant]
     Active Substance: CORTISONE
     Indication: Product used for unknown indication
     Dosage: TAPERED DOSE WEEKLY TO REDUCE 5MG, TO COMPLETE AFTER 8 WEEKS
  7. CORTISONE [Concomitant]
     Active Substance: CORTISONE
     Indication: Product used for unknown indication
     Route: 042
  8. CORTISONE [Concomitant]
     Active Substance: CORTISONE
     Indication: Product used for unknown indication
     Route: 048
  9. PANADOL [Concomitant]
     Active Substance: ACETAMINOPHEN
     Indication: Pain

REACTIONS (6)
  - Anal incontinence [Recovering/Resolving]
  - Fatigue [Recovering/Resolving]
  - Gastrointestinal haemorrhage [Recovered/Resolved]
  - Abdominal pain [Recovering/Resolving]
  - Maternal exposure during pregnancy [Unknown]
  - Live birth [Unknown]

NARRATIVE: CASE EVENT DATE: 20210101
